FAERS Safety Report 20961141 (Version 1)
Quarter: 2022Q2

REPORT INFORMATION
  Report Type: Spontaneous
  Country: DE (occurrence: DE)
  Receive Date: 20220615
  Receipt Date: 20220615
  Transmission Date: 20220720
  Serious: Yes (Death, Hospitalization, Other)
  Sender: FDA-Public Use
  Company Number: DE-SANOFI-01140559

PATIENT
  Sex: Female

DRUGS (1)
  1. CABLIVI [Suspect]
     Active Substance: CAPLACIZUMAB-YHDP
     Indication: Platelet count abnormal
     Dosage: 10 MG

REACTIONS (6)
  - Organ failure [Fatal]
  - Cerebrovascular accident [Fatal]
  - Renal infarct [Fatal]
  - Splenic infarction [Fatal]
  - Fall [Unknown]
  - Product use in unapproved indication [Unknown]
